FAERS Safety Report 13767002 (Version 1)
Quarter: 2017Q3

REPORT INFORMATION
  Report Type: Spontaneous
  Country: CA (occurrence: US)
  Receive Date: 20170719
  Receipt Date: 20170719
  Transmission Date: 20171127
  Serious: Yes (Hospitalization)
  Sender: FDA-Public Use
  Company Number: None

PATIENT
  Age: 73 Year
  Sex: Male
  Weight: 70.5 kg

DRUGS (2)
  1. CASODEX [Suspect]
     Active Substance: BICALUTAMIDE
     Dates: end: 20170324
  2. ZOLADEX [Suspect]
     Active Substance: GOSERELIN ACETATE
     Dates: end: 20161013

REACTIONS (4)
  - Urinary retention [None]
  - Pyelonephritis [None]
  - Klebsiella infection [None]
  - Abdominal pain [None]

NARRATIVE: CASE EVENT DATE: 20170324
